FAERS Safety Report 7790953-6 (Version None)
Quarter: 2011Q3

REPORT INFORMATION
  Report Type: 
  Country: None (occurrence: None)
  Receive Date: 20110930
  Receipt Date: 20110930
  Transmission Date: 20111222
  Serious: No
  Sender: FDA-Public Use
  Company Number: None

PATIENT
  Sex: Male
  Weight: 29.1 kg

DRUGS (7)
  1. XOPENEX HFA [Concomitant]
     Route: 045
  2. RISPERDAL [Concomitant]
  3. DEPAKOTE [Concomitant]
     Route: 048
  4. FLOVENT [Concomitant]
     Route: 050
  5. INTUNIV [Concomitant]
  6. SINGULAIR [Suspect]
     Indication: ASTHMA
     Dosage: 5MG
     Route: 048
  7. SEROQUEL [Concomitant]

REACTIONS (5)
  - ABNORMAL BEHAVIOUR [None]
  - DISTURBANCE IN ATTENTION [None]
  - ENURESIS [None]
  - SOMNOLENCE [None]
  - SLEEP DISORDER [None]
